FAERS Safety Report 8449850-5 (Version None)
Quarter: 2012Q2

REPORT INFORMATION
  Report Type: 
  Country: None (occurrence: None)
  Receive Date: 20120614
  Receipt Date: 20120614
  Transmission Date: 20120825
  Serious: Yes (Hospitalization, Other)
  Sender: FDA-Public Use
  Company Number: None

PATIENT
  Sex: Female

DRUGS (4)
  1. AVELOX [Suspect]
     Indication: SINUSITIS
     Dosage: 400 MG, ONCE A DAY, PO
     Route: 048
     Dates: start: 20120609, end: 20120610
  2. BIRTH CONTROL [Concomitant]
  3. STEROID SHOT [Concomitant]
  4. DEBADRON [Concomitant]

REACTIONS (4)
  - HEART RATE IRREGULAR [None]
  - BLOOD PRESSURE ABNORMAL [None]
  - DIZZINESS [None]
  - TREMOR [None]
